FAERS Safety Report 10202284 (Version 1)
Quarter: 2014Q2

REPORT INFORMATION
  Report Type: Spontaneous
  Country: US (occurrence: US)
  Receive Date: 20140528
  Receipt Date: 20140528
  Transmission Date: 20141212
  Serious: No
  Sender: FDA-Public Use
  Company Number: US-BRISTOL-MYERS SQUIBB COMPANY-20302428

PATIENT
  Sex: Male

DRUGS (3)
  1. BYETTA [Suspect]
     Indication: DIABETES MELLITUS
     Dates: start: 201304
  2. METFORMIN HCL [Suspect]
     Route: 048
  3. GLYBURIDE [Suspect]
     Route: 048

REACTIONS (3)
  - Weight fluctuation [Unknown]
  - Decreased appetite [Recovered/Resolved]
  - Drug ineffective [Not Recovered/Not Resolved]
